FAERS Safety Report 7105058-7 (Version None)
Quarter: 2010Q4

REPORT INFORMATION
  Report Type: 
  Country: None (occurrence: None)
  Receive Date: 20101116
  Receipt Date: 20080122
  Transmission Date: 20110411
  Serious: No
  Sender: FDA-Public Use
  Company Number: US-KINGPHARMUSA00001-K200800074

PATIENT
  Sex: Male
  Weight: 74.83 kg

DRUGS (1)
  1. CORGARD [Suspect]
     Indication: TACHYCARDIA
     Dosage: 40 MG BID (1/2 TABLET AM + 1/2 TABLET PM)

REACTIONS (1)
  - DRUG INEFFECTIVE [None]
